FAERS Safety Report 9438097 (Version 1)
Quarter: 2013Q3

REPORT INFORMATION
  Report Type: Spontaneous
  Country: US (occurrence: US)
  Receive Date: 20130802
  Receipt Date: 20130802
  Transmission Date: 20140515
  Serious: Yes (Hospitalization)
  Sender: FDA-Public Use
  Company Number: US-BRISTOL-MYERS SQUIBB COMPANY-16828121

PATIENT
  Age: 70 Year
  Sex: Male

DRUGS (2)
  1. WARFARIN SODIUM [Suspect]
     Route: 065
  2. LETAIRIS [Suspect]
     Dosage: STOPPED FOR A WEEK?TABS
     Route: 048
     Dates: start: 20120630

REACTIONS (1)
  - Pulmonary haemorrhage [Unknown]
